FAERS Safety Report 7810347-4 (Version None)
Quarter: 2011Q4

REPORT INFORMATION
  Report Type: 
  Country: None (occurrence: None)
  Receive Date: 20111012
  Receipt Date: 20110930
  Transmission Date: 20120403
  Serious: Yes (Other)
  Sender: FDA-Public Use
  Company Number: PHFR2011GB00543

PATIENT
  Age: 88 Year
  Sex: Female

DRUGS (3)
  1. ZOLEDRONOC ACID [Suspect]
     Indication: OSTEOPOROSIS
     Dosage: 5 MG, ONCE/SINGLE
     Dates: start: 20100101
  2. CALCIUM CARBONATE [Concomitant]
     Indication: OSTEOPOROSIS
  3. CALCIUM D3 [Concomitant]
     Indication: OSTEOPOROSIS
     Dosage: UNK, BID
     Route: 048

REACTIONS (4)
  - ECZEMA [None]
  - INSOMNIA [None]
  - SKIN IRRITATION [None]
  - CRYING [None]
